FAERS Safety Report 24403813 (Version 1)
Quarter: 2024Q4

REPORT INFORMATION
  Report Type: Report from Study
  Country: IT (occurrence: IT)
  Receive Date: 20241007
  Receipt Date: 20241007
  Transmission Date: 20250115
  Serious: No
  Sender: ROCHE
  Company Number: IT-ROCHE-2690297

PATIENT
  Age: 62 Year
  Sex: Male

DRUGS (3)
  1. OBINUTUZUMAB [Suspect]
     Active Substance: OBINUTUZUMAB
     Indication: Follicular lymphoma
     Dosage: DAY 1, 8, 15 OF CYCLE 1 AN DAY 1 OF CYCLES 2-6 OR 2-8. MAINTENANCE PHASE: 1000 MG IV EVERY 2 MONTHS
     Route: 042
     Dates: start: 20200504
  2. VINCRISTINE [Concomitant]
     Active Substance: VINCRISTINE
     Indication: Follicular lymphoma
     Dosage: INDUCTION CYCLE
     Route: 042
     Dates: start: 20200504, end: 20200821
  3. BAMLANIVIMAB\ETESEVIMAB [Concomitant]
     Active Substance: BAMLANIVIMAB\ETESEVIMAB
     Dates: start: 20220104

REACTIONS (4)
  - Paraesthesia [Recovered/Resolved]
  - Asthenia [Recovered/Resolved]
  - COVID-19 [Recovered/Resolved]
  - Off label use [Unknown]

NARRATIVE: CASE EVENT DATE: 20200616
